FAERS Safety Report 5125542-5 (Version None)
Quarter: 2006Q4

REPORT INFORMATION
  Report Type: 
  Country: None (occurrence: None)
  Receive Date: 20061006
  Receipt Date: 20060928
  Transmission Date: 20070319
  Serious: Yes (Hospitalization, Other)
  Sender: FDA-Public Use
  Company Number: 2006BH013421

PATIENT
  Age: 29 Day
  Sex: Male
  Weight: 1.34 kg

DRUGS (3)
  1. HEPARIN SODIUM [Suspect]
     Indication: INTRAVENOUS CATHETER MANAGEMENT
     Dosage: 0.5 ML;ONCE;IV
     Route: 042
     Dates: start: 20060916, end: 20060916
  2. HEPARIN SODIUM [Suspect]
     Indication: INTRAVENOUS CATHETER MANAGEMENT
     Dosage: 0.5 ML;ONCE;IV
     Route: 042
     Dates: start: 20060916, end: 20060916
  3. HEPARIN SODIUM [Suspect]
     Indication: INTRAVENOUS CATHETER MANAGEMENT
     Dosage: 0.5 ML;ONCE;IV
     Route: 042
     Dates: start: 20060916, end: 20060916

REACTIONS (4)
  - ACTIVATED PARTIAL THROMBOPLASTIN TIME PROLONGED [None]
  - INTERNATIONAL NORMALISED RATIO INCREASED [None]
  - MEDICATION ERROR [None]
  - OVERDOSE [None]
